FAERS Safety Report 22154510 (Version 1)
Quarter: 2023Q1

REPORT INFORMATION
  Report Type: Spontaneous
  Country: US (occurrence: US)
  Receive Date: 20230330
  Receipt Date: 20230330
  Transmission Date: 20230418
  Serious: Yes (Other)
  Sender: FDA-Public Use
  Company Number: US-PTx-2022000049

PATIENT
  Sex: Female

DRUGS (1)
  1. LEUKINE [Suspect]
     Active Substance: SARGRAMOSTIM
     Indication: Choriocarcinoma
     Dosage: ONE TIME USE
     Route: 065

REACTIONS (2)
  - Anaphylactic shock [Unknown]
  - Illness [Unknown]
